FAERS Safety Report 9023351 (Version 1)
Quarter: 2013Q1

REPORT INFORMATION
  Report Type: Spontaneous
  Country: US (occurrence: US)
  Receive Date: 20130120
  Receipt Date: 20130120
  Transmission Date: 20140127
  Serious: No
  Sender: FDA-Public Use
  Company Number: US-ALLERGAN-1214346US

PATIENT
  Age: 54 Year
  Sex: Female

DRUGS (10)
  1. BOTOX COSMETIC [Suspect]
     Indication: SKIN WRINKLING
     Dosage: 25 UNITS, SINGLE
     Route: 030
     Dates: start: 20120913, end: 20120913
  2. BOTOX COSMETIC [Suspect]
     Indication: SKIN WRINKLING
     Dosage: 25 UNITS, SINGLE
     Route: 030
     Dates: start: 20120913, end: 20120913
  3. BOTOX COSMETIC [Suspect]
     Indication: SKIN WRINKLING
     Dosage: 10 UNITS, SINGLE
     Route: 030
     Dates: start: 20120913, end: 20120913
  4. BOTOX COSMETIC [Suspect]
     Dosage: 20 UNITS, SINGLE
     Route: 030
     Dates: start: 20120627, end: 20120627
  5. BOTOX COSMETIC [Suspect]
     Dosage: 20 UNITS, SINGLE
     Route: 030
     Dates: start: 20120627, end: 20120627
  6. BOTOX COSMETIC [Suspect]
     Dosage: 10 UNITS, SINGLE
     Route: 030
     Dates: start: 20120627, end: 20120627
  7. SYNTHROID [Concomitant]
     Indication: PRODUCT USED FOR UNKNOWN INDICATION
     Dosage: UNK
     Route: 048
  8. XANAX [Concomitant]
     Indication: PRODUCT USED FOR UNKNOWN INDICATION
     Dosage: UNK
     Route: 048
  9. LEVOCETIRIZINE [Concomitant]
     Indication: PRODUCT USED FOR UNKNOWN INDICATION
     Dosage: UNK
     Route: 048
  10. ENJUVIA [Concomitant]
     Indication: PRODUCT USED FOR UNKNOWN INDICATION
     Dosage: UNK

REACTIONS (3)
  - Incorrect dose administered [Unknown]
  - Drug ineffective [Unknown]
  - Drug ineffective [Unknown]
